FAERS Safety Report 9725796 (Version 1)
Quarter: 2013Q4

REPORT INFORMATION
  Report Type: Not Available
  Country: IT (occurrence: IT)
  Receive Date: 20131203
  Receipt Date: 20131203
  Transmission Date: 20140711
  Serious: Yes (Hospitalization)
  Sender: FDA-Public Use
  Company Number: IT-ASTELLAS-2013EU010477

PATIENT
  Age: 35 Year
  Sex: Male
  Weight: 69 kg

DRUGS (9)
  1. PROGRAF [Suspect]
     Indication: PROPHYLAXIS AGAINST TRANSPLANT REJECTION
     Dosage: 6 MG, UNKNOWN/D
     Route: 048
     Dates: start: 20070101, end: 20131018
  2. PROGRAF [Suspect]
     Dosage: 5 MG, UNKNOWN/D
     Route: 048
  3. OMEPRAZOLE [Concomitant]
     Dosage: 5 MG, UNKNOWN/D
     Route: 048
     Dates: start: 20120101, end: 20131018
  4. CLARITHROMYCIN [Concomitant]
     Dosage: 1 DF, UNKNOWN/D
     Route: 048
     Dates: start: 20131013, end: 20131018
  5. MYFENAX                            /01275102/ [Concomitant]
     Indication: PROPHYLAXIS AGAINST TRANSPLANT REJECTION
     Dosage: 2 DF, UNKNOWN/D
     Route: 048
     Dates: start: 20070101, end: 20131018
  6. DELTACORTENE [Concomitant]
     Dosage: 5 MG, UNKNOWN/D
     Route: 048
     Dates: start: 20120101, end: 20131018
  7. CARDIOASPIRIN [Concomitant]
     Dosage: 100 MG, UNKNOWN/D
     Route: 048
     Dates: start: 20120101, end: 20131018
  8. LOBIVON [Concomitant]
     Dosage: 5 MG, UNKNOWN/D
     Route: 048
     Dates: start: 20120101, end: 20131018
  9. MAGNESIUM PIDOLATE [Concomitant]
     Dosage: 1 DF, UNKNOWN/D
     Route: 048
     Dates: start: 20120101, end: 20131018

REACTIONS (2)
  - Muscle rigidity [Recovering/Resolving]
  - Hyperkalaemia [Recovering/Resolving]
